FAERS Safety Report 15348513 (Version 1)
Quarter: 2018Q3

REPORT INFORMATION
  Report Type: Spontaneous
  Country: US (occurrence: US)
  Receive Date: 20180904
  Receipt Date: 20180904
  Transmission Date: 20181010
  Serious: No
  Sender: FDA-Public Use
  Company Number: US-OREXO US, INC.-ORE201803-000029

PATIENT
  Sex: Female

DRUGS (1)
  1. ZUBSOLV [Suspect]
     Active Substance: BUPRENORPHINE HYDROCHLORIDE\NALOXONE HYDROCHLORIDE
     Dosage: 11.4 MG

REACTIONS (8)
  - Drug withdrawal syndrome [Unknown]
  - Abdominal discomfort [Unknown]
  - Vomiting [Unknown]
  - Body dysmorphic disorder [Unknown]
  - Visual impairment [Unknown]
  - Oral disorder [Unknown]
  - Feeling abnormal [Unknown]
  - Diarrhoea [Unknown]
